FAERS Safety Report 5149491-1 (Version None)
Quarter: 2006Q4

REPORT INFORMATION
  Report Type: 
  Country: None (occurrence: None)
  Receive Date: 20061113
  Receipt Date: 20061101
  Transmission Date: 20070319
  Serious: Yes (Other)
  Sender: FDA-Public Use
  Company Number: PHBS2006JP17209

PATIENT

DRUGS (2)
  1. NEORAL [Suspect]
     Indication: HAEMOPHILIA
     Route: 048
  2. PREDNISOLON [Concomitant]
     Route: 048

REACTIONS (3)
  - DRUG LEVEL INCREASED [None]
  - GASTROINTESTINAL HAEMORRHAGE [None]
  - HAEMOLYTIC URAEMIC SYNDROME [None]
